FAERS Safety Report 9254809 (Version 1)
Quarter: 2013Q1

REPORT INFORMATION
  Report Type: Spontaneous
  Country: US (occurrence: None)
  Receive Date: 20121212
  Receipt Date: 20121212
  Transmission Date: 20140127
  Serious: No
  Sender: FDA-Public Use
  Company Number: 1209USA011819

PATIENT
  Age: 57 Year
  Sex: Male

DRUGS (3)
  1. VICTRELIS [Suspect]
     Route: 048
     Dates: start: 201207
  2. PEG-INTRON [Suspect]
     Dates: start: 201207
  3. RIBASPHERE (RIBAVIRIN) [Concomitant]

REACTIONS (2)
  - Arthralgia [None]
  - Influenza like illness [None]
